FAERS Safety Report 7129316-5 (Version None)
Quarter: 2010Q4

REPORT INFORMATION
  Report Type: 
  Country: None (occurrence: None)
  Receive Date: 20101130
  Receipt Date: 20101119
  Transmission Date: 20110411
  Serious: No
  Sender: FDA-Public Use
  Company Number: US-PFIZER INC-2010126285

PATIENT
  Sex: Female
  Weight: 77 kg

DRUGS (10)
  1. TOVIAZ [Suspect]
     Indication: HYPERTONIC BLADDER
     Dosage: 4 MG, 1X/DAY
     Route: 048
     Dates: start: 20100401
  2. TOVIAZ [Suspect]
     Dosage: 8 MG, 1X/DAY
     Dates: start: 20100929
  3. PROZAC [Concomitant]
     Indication: DEPRESSION
     Dosage: UNK
  4. XANAX [Concomitant]
     Indication: DEPRESSION
     Dosage: UNK
  5. LASIX [Concomitant]
     Dosage: UNK
  6. LIPITOR [Concomitant]
     Indication: BLOOD CHOLESTEROL INCREASED
     Dosage: UNK
  7. POTASSIUM [Concomitant]
     Dosage: UNK
  8. SEROQUEL [Concomitant]
     Indication: SLEEP DISORDER
     Dosage: UNK
  9. GABAPENTIN [Concomitant]
     Indication: BACK PAIN
     Dosage: UNK
  10. ACETYLSALICYLIC ACID [Concomitant]
     Indication: ANTICOAGULANT THERAPY
     Dosage: 81 MG, UNK

REACTIONS (4)
  - DRUG INEFFECTIVE [None]
  - DYSURIA [None]
  - MICTURITION URGENCY [None]
  - POLLAKIURIA [None]
